FAERS Safety Report 24603298 (Version 1)
Quarter: 2024Q4

REPORT INFORMATION
  Report Type: Spontaneous
  Country: US (occurrence: US)
  Receive Date: 20241111
  Receipt Date: 20241111
  Transmission Date: 20250115
  Serious: Yes (Life-Threatening, Hospitalization)
  Sender: BAYER HEALTHCARE LLC
  Company Number: US-MLMSERVICE-20241030-PI243967-00033-1

PATIENT
  Age: 51 Year
  Sex: Female

DRUGS (2)
  1. ASPIRIN [Suspect]
     Active Substance: ASPIRIN
     Indication: Acute myocardial infarction
  2. CLOPIDOGREL [Concomitant]
     Active Substance: CLOPIDOGREL BISULFATE
     Indication: Acute myocardial infarction

REACTIONS (9)
  - NSAID exacerbated respiratory disease [Recovering/Resolving]
  - Cardiogenic shock [Recovering/Resolving]
  - Bronchospasm [Recovering/Resolving]
  - Cardiac arrest [Recovering/Resolving]
  - Ejection fraction decreased [Recovering/Resolving]
  - Ventricular hypokinesia [Recovering/Resolving]
  - Ventricular fibrillation [Recovering/Resolving]
  - Atrioventricular block complete [Recovering/Resolving]
  - Respiratory failure [Recovering/Resolving]
